FAERS Safety Report 18065978 (Version 3)
Quarter: 2020Q3

REPORT INFORMATION
  Report Type: Report from Study
  Country: US (occurrence: US)
  Receive Date: 20200724
  Receipt Date: 20200819
  Transmission Date: 20201103
  Serious: Yes (Other)
  Sender: FDA-Public Use
  Company Number: NVSC2020US207943

PATIENT
  Sex: Female

DRUGS (1)
  1. VOTRIENT [Suspect]
     Active Substance: PAZOPANIB HYDROCHLORIDE
     Indication: PRODUCT USED FOR UNKNOWN INDICATION
     Dosage: UNK
     Route: 065

REACTIONS (10)
  - Pain [Unknown]
  - Fluid intake reduced [Unknown]
  - Confusional state [Unknown]
  - Fall [Unknown]
  - Amnesia [Unknown]
  - Eating disorder [Unknown]
  - Rib fracture [Unknown]
  - Blood pressure abnormal [Unknown]
  - Anger [Unknown]
  - Neoplasm malignant [Unknown]
